FAERS Safety Report 9494144 (Version 2)
Quarter: 2013Q3

REPORT INFORMATION
  Report Type: Spontaneous
  Country: JP (occurrence: JP)
  Receive Date: 20130903
  Receipt Date: 20130906
  Transmission Date: 20140515
  Serious: No
  Sender: FDA-Public Use
  Company Number: PHHY2013JP095546

PATIENT
  Age: 41 Year
  Sex: Male

DRUGS (4)
  1. TEGRETOL [Suspect]
     Indication: EPILEPSY
     Dosage: 2 DF, BID
     Route: 048
     Dates: end: 20130712
  2. TEGRETOL [Suspect]
     Indication: EPILEPSY
     Dosage: 0.8 G, DAILY
     Route: 048
     Dates: start: 20130712
  3. RIVOTRIL [Suspect]
     Dosage: UNK UKN, UNK
     Route: 048
     Dates: end: 20130814
  4. RIVOTRIL [Suspect]
     Dosage: UNK UKN, UNK
     Route: 048
     Dates: start: 20130814

REACTIONS (1)
  - Convulsion [Unknown]
